FAERS Safety Report 5041098-X (Version None)
Quarter: 2006Q3

REPORT INFORMATION
  Report Type: 
  Country: None (occurrence: None)
  Receive Date: 20060703
  Receipt Date: 20060621
  Transmission Date: 20061208
  Serious: Yes (Other)
  Sender: FDA-Public Use
  Company Number: CA-ROCHE-452852

PATIENT
  Age: 25 Year
  Sex: Male
  Weight: 91 kg

DRUGS (1)
  1. ACCUTANE [Suspect]
     Indication: ACNE
     Route: 048
     Dates: start: 20010615, end: 20020105

REACTIONS (11)
  - ABDOMINAL DISCOMFORT [None]
  - ANXIETY [None]
  - DEPRESSION [None]
  - EATING DISORDER [None]
  - EPISTAXIS [None]
  - FATIGUE [None]
  - HYPERHIDROSIS [None]
  - LETHARGY [None]
  - SLEEP DISORDER [None]
  - TREMOR [None]
  - WEIGHT DECREASED [None]
